FAERS Safety Report 10507210 (Version 1)
Quarter: 2014Q3

REPORT INFORMATION
  Report Type: Spontaneous
  Country: US (occurrence: None)
  Receive Date: 20140915
  Receipt Date: 20140915
  Transmission Date: 20150326
  Serious: Yes (Other)
  Sender: FDA-Public Use
  Company Number: 2013-US-001457

PATIENT
  Age: 48 Year
  Sex: Male
  Weight: 88.9 kg

DRUGS (7)
  1. XYREM [Suspect]
     Active Substance: SODIUM OXYBATE
     Indication: NARCOLEPSY
     Route: 048
     Dates: start: 201307, end: 2013
  2. TESTOSTERONE CYPIONATE. [Concomitant]
     Active Substance: TESTOSTERONE CYPIONATE
  3. NUVIGIL [Concomitant]
     Active Substance: ARMODAFINIL
  4. HYDROCORTISONE. [Concomitant]
     Active Substance: HYDROCORTISONE
  5. PROGESTERONE. [Concomitant]
     Active Substance: PROGESTERONE
  6. ANASTROZOLE. [Concomitant]
     Active Substance: ANASTROZOLE
  7. ARMOUR THYROID [Concomitant]
     Active Substance: THYROID, PORCINE\THYROID, UNSPECIFIED

REACTIONS (3)
  - Condition aggravated [None]
  - Insomnia [None]
  - Sleep apnoea syndrome [None]

NARRATIVE: CASE EVENT DATE: 2013
